FAERS Safety Report 11198486 (Version 1)
Quarter: 2015Q2

REPORT INFORMATION
  Report Type: Spontaneous
  Country: US (occurrence: None)
  Receive Date: 20150616
  Receipt Date: 20150616
  Transmission Date: 20150821
  Serious: Yes (Hospitalization)
  Sender: FDA-Public Use
  Company Number: 2015-001181

PATIENT
  Age: 24 Year
  Sex: Female

DRUGS (1)
  1. ESTROSTEP FE [Suspect]
     Active Substance: ETHINYL ESTRADIOL\NORETHINDRONE ACETATE
     Route: 048

REACTIONS (4)
  - Pancreatitis acute [None]
  - Hyponatraemia [None]
  - Hypocalcaemia [None]
  - Hypertriglyceridaemia [None]
